FAERS Safety Report 6678695-1 (Version None)
Quarter: 2010Q2

REPORT INFORMATION
  Report Type: 
  Country: None (occurrence: None)
  Receive Date: 20100413
  Receipt Date: 20100406
  Transmission Date: 20101027
  Serious: Yes (Hospitalization)
  Sender: FDA-Public Use
  Company Number: DE-JNJFOC-20100207809

PATIENT
  Age: 87 Year
  Sex: Female

DRUGS (7)
  1. RISPERDAL [Suspect]
     Indication: DRUG USE FOR UNKNOWN INDICATION
     Route: 048
     Dates: start: 20070101, end: 20100115
  2. REMINYL [Suspect]
     Indication: DRUG USE FOR UNKNOWN INDICATION
     Route: 048
     Dates: start: 20060101
  3. CALCIUM [Concomitant]
     Route: 048
     Dates: start: 20060101
  4. METOPROLOL SUCCINATE [Concomitant]
     Route: 048
     Dates: start: 20060101
  5. TORSEMIDE [Concomitant]
     Route: 048
     Dates: start: 20060101
  6. ASPIRIN [Concomitant]
     Route: 048
     Dates: start: 20060101
  7. AMPICILLIN SODIUM [Concomitant]
     Route: 048
     Dates: start: 20100108, end: 20100114

REACTIONS (2)
  - PLEUROTHOTONUS [None]
  - URINARY TRACT INFECTION [None]
